FAERS Safety Report 4778057-8 (Version None)
Quarter: 2005Q3

REPORT INFORMATION
  Report Type: 
  Country: None (occurrence: None)
  Receive Date: 20050923
  Receipt Date: 20050923
  Transmission Date: 20060218
  Serious: Yes (Hospitalization)
  Sender: FDA-Public Use
  Company Number: None

PATIENT
  Age: 42 Year
  Sex: Female
  Weight: 60 kg

DRUGS (3)
  1. GEFITINIB [Suspect]
     Dosage: 250MG
     Dates: start: 20031105
  2. LOVENOX [Concomitant]
  3. ALEVE [Concomitant]

REACTIONS (2)
  - CONVULSION [None]
  - DISEASE PROGRESSION [None]
